FAERS Safety Report 8068439-3 (Version None)
Quarter: 2012Q1

REPORT INFORMATION
  Report Type: 
  Country: None (occurrence: None)
  Receive Date: 20120124
  Receipt Date: 20111024
  Transmission Date: 20120608
  Serious: No
  Sender: FDA-Public Use
  Company Number: US-AMGEN-USASP2011055064

PATIENT
  Age: 55 Year
  Sex: Female

DRUGS (3)
  1. PROLIA [Suspect]
     Indication: OSTEOPOROSIS POSTMENOPAUSAL
     Dates: start: 20110418
  2. FLUOCINONIDE 0.05% TOPIC CREAM [Concomitant]
  3. HYDROCORTISONE TOPICAL CREAM [Concomitant]
     Dosage: UNK

REACTIONS (4)
  - PSORIASIS [None]
  - DERMATITIS [None]
  - RASH ERYTHEMATOUS [None]
  - RASH [None]
